FAERS Safety Report 7403848-4 (Version None)
Quarter: 2011Q2

REPORT INFORMATION
  Report Type: 
  Country: None (occurrence: None)
  Receive Date: 20110408
  Receipt Date: 20110331
  Transmission Date: 20111010
  Serious: Yes (Death)
  Sender: FDA-Public Use
  Company Number: GR-GENZYME-CAMP-1001528

PATIENT

DRUGS (3)
  1. CAMPATH [Suspect]
     Indication: ACUTE LEUKAEMIA
  2. CYCLOSPORINE [Concomitant]
     Indication: PROPHYLAXIS AGAINST GRAFT VERSUS HOST DISEASE
     Route: 065
  3. CAMPATH [Suspect]
     Indication: STEM CELL TRANSPLANT
     Dosage: 20 MG, UNK
     Route: 042

REACTIONS (1)
  - LEUKAEMIA RECURRENT [None]
